FAERS Safety Report 7679539-1 (Version None)
Quarter: 2011Q3

REPORT INFORMATION
  Report Type: 
  Country: None (occurrence: None)
  Receive Date: 20110812
  Receipt Date: 20110810
  Transmission Date: 20111222
  Serious: Yes (Hospitalization)
  Sender: FDA-Public Use
  Company Number: US-BRISTOL-MYERS SQUIBB COMPANY-15962319

PATIENT
  Age: 75 Year
  Sex: Female
  Weight: 83 kg

DRUGS (6)
  1. METOPROLOL TARTRATE [Concomitant]
  2. TAXOL [Suspect]
     Indication: NON-SMALL CELL LUNG CANCER
     Dosage: TOTAL DOSE IN RECENT COURSE 261MG;LAST DOSE ON 04AUG11,87 MG (ON DAYS 8,15 AND 22).
     Route: 042
     Dates: start: 20110714
  3. CARBOPLATIN [Suspect]
     Indication: NON-SMALL CELL LUNG CANCER
     Dosage: TOTAL DOSE IN RECENT COURSE (634MG);LAST DOSE ON 04AUG11,220MG(ON DAYS 8 AND 15),194MG ON DAY 22
     Route: 036
     Dates: start: 20110714
  4. LASIX [Concomitant]
  5. HYDROCHLOROTHIAZIDE [Concomitant]
  6. ERBITUX [Suspect]
     Indication: NON-SMALL CELL LUNG CANCER
     Dosage: TOTAL DOSE IN RECENT COURSE (2218MG);LAST DOSE 04AUG11,772MGX1(LOAD),482MG(ON DAYS 8,15 AND 22).
     Route: 042
     Dates: start: 20110714

REACTIONS (3)
  - ATRIAL FIBRILLATION [None]
  - DEHYDRATION [None]
  - DIZZINESS [None]
